FAERS Safety Report 7965095-7 (Version None)
Quarter: 2011Q4

REPORT INFORMATION
  Report Type: 
  Country: None (occurrence: None)
  Receive Date: 20111208
  Receipt Date: 20111128
  Transmission Date: 20120403
  Serious: Yes (Hospitalization)
  Sender: FDA-Public Use
  Company Number: US-BAYER-201034039NA

PATIENT
  Age: 39 Year
  Sex: Female
  Weight: 99.773 kg

DRUGS (10)
  1. SYNTHROID [Concomitant]
     Indication: THYROID DISORDER
     Dosage: UNK
     Dates: start: 20080423
  2. TRIAMCINOLONE [Concomitant]
     Dosage: 0.025 %, UNK
     Dates: start: 20080623
  3. NSAID'S [Concomitant]
     Dosage: UNK UNK, PRN
  4. IRON SUPPLEMENT [Concomitant]
  5. REPLIVA 21-7 [Concomitant]
     Dosage: UNK
     Dates: start: 20080704
  6. PREVACID [Concomitant]
     Dosage: UNK
     Dates: start: 20081111
  7. PREVPAC [Concomitant]
     Dosage: UNK
     Dates: start: 20080815
  8. DROSPIRENONE AND ETHINYL ESTRADIOL [Suspect]
     Indication: CONTRACEPTION
     Route: 048
     Dates: start: 20080701, end: 20080901
  9. ACETYLSALICYLIC ACID SRT [Concomitant]
     Indication: THROMBOSIS PROPHYLAXIS
     Dosage: UNK
     Dates: start: 20080401
  10. YASMIN [Suspect]
     Indication: CONTRACEPTION
     Dosage: UNK
     Route: 048
     Dates: start: 20080401, end: 20080701

REACTIONS (2)
  - PULMONARY EMBOLISM [None]
  - DEEP VEIN THROMBOSIS [None]
